FAERS Safety Report 5613038-3 (Version None)
Quarter: 2008Q1

REPORT INFORMATION
  Report Type: 
  Country: None (occurrence: None)
  Receive Date: 20080204
  Receipt Date: 20080123
  Transmission Date: 20080703
  Serious: Yes (Hospitalization)
  Sender: FDA-Public Use
  Company Number: ES-PFIZER INC-2008007140

PATIENT
  Age: 75 Year
  Sex: Female

DRUGS (6)
  1. ALDACTONE [Suspect]
     Route: 048
  2. CAPTOPRIL [Interacting]
     Indication: HYPERTENSION
     Route: 048
  3. AMLODIPINE [Concomitant]
     Indication: ATRIAL FIBRILLATION
  4. SINTROM [Concomitant]
  5. DIPOTASSIUM CLORAZEPATE [Concomitant]
     Dosage: DAILY DOSE:10MG
     Route: 048
  6. FUROSEMIDE [Concomitant]
     Indication: RENAL FAILURE
     Route: 048

REACTIONS (4)
  - ASTHENIA [None]
  - DRUG INTERACTION [None]
  - HEADACHE [None]
  - HYPERKALAEMIA [None]
